FAERS Safety Report 6892552-7 (Version None)
Quarter: 2010Q3

REPORT INFORMATION
  Report Type: 
  Country: None (occurrence: None)
  Receive Date: 20100731
  Receipt Date: 20080624
  Transmission Date: 20110219
  Serious: No
  Sender: FDA-Public Use
  Company Number: US-PFIZER INC-2008020289

PATIENT
  Age: 38 Year
  Sex: Female

DRUGS (4)
  1. NEURONTIN [Suspect]
     Indication: ANXIETY
  2. CLOZAPINE [Concomitant]
  3. INDERAL [Concomitant]
  4. LITHIUM CARBONATE [Concomitant]

REACTIONS (1)
  - ABDOMINAL DISCOMFORT [None]
